FAERS Safety Report 10020710 (Version 2)
Quarter: 2014Q1

REPORT INFORMATION
  Report Type: Spontaneous
  Country: IT (occurrence: IT)
  Receive Date: 20140319
  Receipt Date: 20140322
  Transmission Date: 20141002
  Serious: Yes (Other)
  Sender: FDA-Public Use
  Company Number: IT-ROCHE-1367479

PATIENT
  Age: 66 Year
  Sex: Female
  Weight: 75 kg

DRUGS (5)
  1. ROACTEMRA [Suspect]
     Indication: RHEUMATOID ARTHRITIS
     Dosage: LAST DOSE ON 06/SEP/2013
     Route: 042
     Dates: start: 20110926
  2. METHOTREXATE [Concomitant]
     Indication: RHEUMATOID ARTHRITIS
     Route: 048
     Dates: start: 20110125
  3. FOLIN [Concomitant]
     Indication: DRUG TOXICITY PROPHYLAXIS
     Route: 048
     Dates: start: 20110125
  4. CRESTOR [Concomitant]
     Indication: DYSLIPIDAEMIA
     Route: 048
  5. PRELECTAL [Concomitant]
     Indication: HYPERTENSION
     Route: 048

REACTIONS (1)
  - Chorea [Recovered/Resolved]
